FAERS Safety Report 5879461-7 (Version None)
Quarter: 2008Q3

REPORT INFORMATION
  Report Type: 
  Country: None (occurrence: None)
  Receive Date: 20080911
  Receipt Date: 20080911
  Transmission Date: 20090109
  Serious: Yes (Hospitalization)
  Sender: FDA-Public Use
  Company Number: None

PATIENT
  Age: 62 Year
  Sex: Male
  Weight: 159 kg

DRUGS (3)
  1. CLONIDINE [Suspect]
     Indication: CARDIAC FAILURE CONGESTIVE
     Dosage: 0.2 MG TID PO
     Route: 048
     Dates: start: 20061212, end: 20080715
  2. CLONIDINE [Suspect]
     Indication: HYPERTENSION
     Dosage: 0.2 MG TID PO
     Route: 048
     Dates: start: 20061212, end: 20080715
  3. METOLAZONE [Suspect]
     Dosage: 5 MG EVERY DAY PO
     Route: 048
     Dates: start: 20080625, end: 20080715

REACTIONS (2)
  - CARDIAC FAILURE CONGESTIVE [None]
  - ORTHOSTATIC HYPOTENSION [None]
